FAERS Safety Report 5904141-9 (Version None)
Quarter: 2008Q3

REPORT INFORMATION
  Report Type: 
  Country: None (occurrence: None)
  Receive Date: 20080919
  Receipt Date: 20080916
  Transmission Date: 20090109
  Serious: Yes (Other)
  Sender: FDA-Public Use
  Company Number: US-WYE-H05034608

PATIENT
  Sex: Female

DRUGS (11)
  1. PRISTIQ [Suspect]
     Indication: BIPOLAR I DISORDER
     Dosage: 50 MG 1X PER 1 DAY, ORAL
     Route: 048
     Dates: end: 20080716
  2. XANAX [Concomitant]
  3. TRAZODONE HCL [Concomitant]
  4. LISINOPRIL [Concomitant]
  5. MELOXICAM [Concomitant]
  6. METOPROLOL TARTRATE [Concomitant]
  7. FLECAINIDE ACETATE [Concomitant]
  8. DILTIAZEM [Concomitant]
  9. ABILIFY [Concomitant]
  10. DIFLORASONE (DIFLORASONE) [Concomitant]
  11. MECLIZINE [Concomitant]

REACTIONS (3)
  - CONDITION AGGRAVATED [None]
  - HEADACHE [None]
  - HYPERTENSION [None]
